FAERS Safety Report 5860838-0 (Version None)
Quarter: 2008Q3

REPORT INFORMATION
  Report Type: 
  Country: None (occurrence: None)
  Receive Date: 20080827
  Receipt Date: 20071128
  Transmission Date: 20090109
  Serious: No
  Sender: FDA-Public Use
  Company Number: US-ABBOTT-07P-163-0426878-00

PATIENT
  Sex: Male
  Weight: 100 kg

DRUGS (6)
  1. COATED PDS [Suspect]
     Indication: LOW DENSITY LIPOPROTEIN INCREASED
     Route: 048
     Dates: start: 20070801, end: 20070901
  2. COATED PDS [Suspect]
     Indication: HIGH DENSITY LIPOPROTEIN DECREASED
     Route: 048
     Dates: start: 20071101
  3. INEGY [Concomitant]
     Indication: LOW DENSITY LIPOPROTEIN INCREASED
     Route: 048
  4. METOPROLOL SUCCINATE [Concomitant]
     Indication: HEART RATE INCREASED
     Route: 048
  5. MELTATONIN [Concomitant]
     Indication: INSOMNIA
     Route: 048
  6. ACETYLSALICYLIC ACID SRT [Concomitant]
     Indication: CARDIOVASCULAR EVENT PROPHYLAXIS
     Route: 048

REACTIONS (1)
  - FLUSHING [None]
